FAERS Safety Report 25668582 (Version 1)
Quarter: 2025Q3

REPORT INFORMATION
  Report Type: Spontaneous
  Country: US (occurrence: US)
  Receive Date: 20250812
  Receipt Date: 20250812
  Transmission Date: 20251021
  Serious: Yes (Hospitalization, Other)
  Sender: UCB
  Company Number: US-UCBSA-2025048948

PATIENT
  Sex: Female
  Weight: 54.422 kg

DRUGS (1)
  1. BIMZELX [Suspect]
     Active Substance: BIMEKIZUMAB-BKZX
     Indication: Hidradenitis
     Dosage: 320 MILLIGRAM, EV 2 WEEKS(QOW)
     Route: 058
     Dates: start: 202506

REACTIONS (2)
  - Wound infection fungal [Unknown]
  - Hidradenitis [Unknown]

NARRATIVE: CASE EVENT DATE: 20250101
